FAERS Safety Report 6019416-5 (Version None)
Quarter: 2008Q4

REPORT INFORMATION
  Report Type: 
  Country: None (occurrence: None)
  Receive Date: 20081224
  Receipt Date: 20081212
  Transmission Date: 20090506
  Serious: Yes (Other)
  Sender: FDA-Public Use
  Company Number: FR-PFIZER INC-2008154566

PATIENT

DRUGS (3)
  1. ZOLOFT [Suspect]
     Dosage: FREQUENCY: EVERY DAY;
     Route: 048
     Dates: start: 20080321, end: 20080722
  2. OMEPRAZOLE [Suspect]
     Indication: SENILE DEMENTIA
     Dosage: FREQUENCY: EVERY DAY;
     Route: 048
     Dates: start: 20080412, end: 20080722
  3. MODOPAR [Suspect]
     Route: 048
     Dates: start: 20080401, end: 20080722

REACTIONS (2)
  - COLITIS [None]
  - DIARRHOEA [None]
